FAERS Safety Report 5600219-8 (Version None)
Quarter: 2008Q1

REPORT INFORMATION
  Report Type: 
  Country: None (occurrence: None)
  Receive Date: 20080123
  Receipt Date: 20080114
  Transmission Date: 20080703
  Serious: Yes (Hospitalization)
  Sender: FDA-Public Use
  Company Number: FR-ASTRAZENECA-2008CG00068

PATIENT
  Age: 85 Year
  Sex: Female
  Weight: 70 kg

DRUGS (7)
  1. HYTACAND [Suspect]
     Indication: HYPERTENSION
     Dosage: 8 + 12.5 MG DAILY
     Route: 048
     Dates: end: 20070829
  2. TEGRETOL [Interacting]
     Indication: EPILEPSY
     Route: 048
     Dates: end: 20070829
  3. TEGRETOL [Interacting]
     Route: 048
     Dates: start: 20070901
  4. PROZAC [Interacting]
     Indication: DEPRESSION
     Route: 048
     Dates: end: 20070829
  5. LASIX [Interacting]
     Indication: HYPERTENSION
     Route: 048
     Dates: end: 20070829
  6. DOGMATIL [Concomitant]
     Indication: ANXIETY
     Route: 048
     Dates: end: 20070828
  7. KARDEGIC [Concomitant]
     Dates: end: 20070928

REACTIONS (2)
  - DRUG INTERACTION [None]
  - HYPONATRAEMIA [None]
